FAERS Safety Report 24286762 (Version 3)
Quarter: 2025Q1

REPORT INFORMATION
  Report Type: Report from Study
  Country: IE (occurrence: IE)
  Receive Date: 20240905
  Receipt Date: 20250108
  Transmission Date: 20250409
  Serious: Yes (Hospitalization, Other)
  Sender: SANOFI AVENTIS
  Company Number: IE-SA-2024SA256674

PATIENT
  Age: 56 Year
  Sex: Female
  Weight: 120 kg

DRUGS (20)
  1. OXALIPLATIN [Suspect]
     Active Substance: OXALIPLATIN
     Indication: Colon cancer
     Dosage: 85 MG/M2 EVERY 2 WEEKS ON DAYS 1, 15 AND 29 OF EACH 6-WEEK (42-DAY) CYCLE
     Route: 042
     Dates: start: 20240705, end: 20240802
  2. OXALIPLATIN [Suspect]
     Active Substance: OXALIPLATIN
     Dosage: 85 MG/M2, EVERY 2 WEEKS ON DAYS 1, 15 AND 29 OF EACH 6-WEEK (42-DAY) CYCLE/Q14DAYS
     Route: 042
     Dates: start: 20240902, end: 20240916
  3. OXALIPLATIN [Suspect]
     Active Substance: OXALIPLATIN
     Route: 065
     Dates: start: 20240707, end: 20240802
  4. TUCATINIB [Suspect]
     Active Substance: TUCATINIB
     Indication: Colon cancer
     Dosage: 200 MG, BID
     Route: 048
     Dates: start: 20240902, end: 20240916
  5. TUCATINIB [Suspect]
     Active Substance: TUCATINIB
     Dosage: 250 MG, BID
     Route: 048
     Dates: start: 20240726, end: 20240818
  6. TRASTUZUMAB [Suspect]
     Active Substance: TRASTUZUMAB
     Indication: Colon cancer
     Dosage: 8 MG/KG, ON CYCLE 1 DAY 22 THEN DAY 1 AND DAY 22 OF EACH SUBSEQUENT 6 WEEK (42-DAY) CYCLE
     Route: 042
     Dates: start: 20240705, end: 20240725
  7. TRASTUZUMAB [Suspect]
     Active Substance: TRASTUZUMAB
     Dosage: 6 MG/KG, ON CYCLIC (Q 21 DAYS)
     Route: 042
     Dates: start: 20240726, end: 20240901
  8. TRASTUZUMAB [Suspect]
     Active Substance: TRASTUZUMAB
     Dosage: 994 MG, Q3W
     Dates: start: 20240902
  9. FLUOROURACIL [Suspect]
     Active Substance: FLUOROURACIL
     Indication: Colon cancer
     Dosage: 400 MG/M2, QOW
     Route: 040
     Dates: start: 20240705, end: 20240802
  10. FLUOROURACIL [Suspect]
     Active Substance: FLUOROURACIL
     Dosage: EVERY 2 WEEKS ON DAYSON DAYS 1, 15 AND 29 OF EACH 6-WEEKS CYCLE/Q14DAYS, IV DRIP
     Route: 041
     Dates: start: 20240705, end: 20240802
  11. FLUOROURACIL [Suspect]
     Active Substance: FLUOROURACIL
     Dosage: 738 MG/M2, QOW
     Route: 040
     Dates: start: 20240902, end: 20240916
  12. FLUOROURACIL [Suspect]
     Active Substance: FLUOROURACIL
     Route: 042
     Dates: start: 20240902, end: 20240916
  13. LEUCOVORIN CALCIUM [Suspect]
     Active Substance: LEUCOVORIN CALCIUM
     Indication: Colon cancer
     Dosage: 400 MG/M2 EVERY 2 WEEKSON DAYS 1, 15 AND 29 OF EACH 6-WEEK CYCLE
     Route: 042
     Dates: start: 20240705, end: 20240802
  14. LEUCOVORIN CALCIUM [Suspect]
     Active Substance: LEUCOVORIN CALCIUM
     Dosage: 922 MG, QOW
     Dates: start: 20240902, end: 20240916
  15. LOPERAMIDE HYDROCHLORIDE [Suspect]
     Active Substance: LOPERAMIDE HYDROCHLORIDE
     Indication: Prophylaxis against diarrhoea
     Dosage: 2-4 MG, 4X/ DAY
     Route: 048
     Dates: start: 20240705
  16. LOPERAMIDE HYDROCHLORIDE [Suspect]
     Active Substance: LOPERAMIDE HYDROCHLORIDE
     Dosage: 4 MG, QID
     Route: 048
  17. ESCITALOPRAM OXALATE [Concomitant]
     Active Substance: ESCITALOPRAM OXALATE
     Indication: Depression
     Route: 048
     Dates: start: 2018, end: 20241125
  18. LOSARTAN POTASSIUM [Concomitant]
     Active Substance: LOSARTAN POTASSIUM
     Route: 048
     Dates: start: 2014, end: 20240919
  19. METFORMIN HYDROCHLORIDE [Concomitant]
     Active Substance: METFORMIN HYDROCHLORIDE
     Indication: Restless legs syndrome
     Dates: start: 20210713, end: 20240925
  20. METFORMIN HYDROCHLORIDE [Concomitant]
     Active Substance: METFORMIN HYDROCHLORIDE
     Indication: Type 2 diabetes mellitus

REACTIONS (2)
  - Acute kidney injury [Recovered/Resolved with Sequelae]
  - Gastrointestinal stoma output increased [Recovered/Resolved with Sequelae]

NARRATIVE: CASE EVENT DATE: 20240813
